FAERS Safety Report 17403195 (Version 3)
Quarter: 2020Q2

REPORT INFORMATION
  Report Type: Report from Study
  Country: US (occurrence: US)
  Receive Date: 20200211
  Receipt Date: 20200428
  Transmission Date: 20200713
  Serious: Yes (Death)
  Sender: FDA-Public Use
  Company Number: US-JNJFOC-20200204394

PATIENT
  Age: 54 Year
  Sex: Male
  Weight: 90.35 kg

DRUGS (14)
  1. SPRAVATO [Suspect]
     Active Substance: ESKETAMINE
     Dates: start: 20200106, end: 20200106
  2. SPRAVATO [Suspect]
     Active Substance: ESKETAMINE
     Dates: start: 20200120, end: 20200120
  3. SPRAVATO [Suspect]
     Active Substance: ESKETAMINE
     Indication: DEPRESSION
     Dates: start: 20191226, end: 20191226
  4. SPRAVATO [Suspect]
     Active Substance: ESKETAMINE
     Dates: start: 20200109, end: 20200109
  5. DILANTIN [Concomitant]
     Active Substance: PHENYTOIN
  6. PRISTIQ EXTENDED-RELEASE [Concomitant]
     Active Substance: DESVENLAFAXINE SUCCINATE
     Indication: DEPRESSION
     Dates: start: 20191219
  7. SEROQUEL [Concomitant]
     Active Substance: QUETIAPINE FUMARATE
     Indication: DEPRESSION
     Dates: start: 20191219
  8. SPRAVATO [Suspect]
     Active Substance: ESKETAMINE
     Indication: MAJOR DEPRESSION
     Dates: start: 20191228, end: 20191228
  9. SPRAVATO [Suspect]
     Active Substance: ESKETAMINE
     Dates: start: 20200104, end: 20200104
  10. SPRAVATO [Suspect]
     Active Substance: ESKETAMINE
     Dates: start: 20200113, end: 20200113
  11. ALPRAZOLAM. [Concomitant]
     Active Substance: ALPRAZOLAM
     Indication: ANXIETY
  12. TRAZODONE [Concomitant]
     Active Substance: TRAZODONE HYDROCHLORIDE
     Indication: INSOMNIA
     Dates: start: 20191125, end: 20200129
  13. SPRAVATO [Suspect]
     Active Substance: ESKETAMINE
     Dates: start: 20191230, end: 20191230
  14. XANAX [Concomitant]
     Active Substance: ALPRAZOLAM
     Indication: ANXIETY
     Dosage: THERAPY END DATE:20-JAN
     Dates: start: 20191209

REACTIONS (1)
  - Completed suicide [Fatal]

NARRATIVE: CASE EVENT DATE: 20200130
